FAERS Safety Report 16210270 (Version 1)
Quarter: 2019Q2

REPORT INFORMATION
  Report Type: Spontaneous
  Country: None (occurrence: CH)
  Receive Date: 20190418
  Receipt Date: 20190418
  Transmission Date: 20190711
  Serious: Yes (Life-Threatening, Hospitalization, Other)
  Sender: FDA-Public Use
  Company Number: CH-ORION CORPORATION ORION PHARMA-19_00006051

PATIENT
  Age: 47 Year

DRUGS (4)
  1. PREDNISONE. [Suspect]
     Active Substance: PREDNISONE
     Indication: ACUTE LYMPHOCYTIC LEUKAEMIA
     Route: 065
     Dates: start: 2015
  2. METHOTREXATE. [Suspect]
     Active Substance: METHOTREXATE
     Indication: ACUTE LYMPHOCYTIC LEUKAEMIA
     Route: 065
     Dates: start: 2015
  3. ONCOVIN [Suspect]
     Active Substance: VINCRISTINE SULFATE
     Indication: ACUTE LYMPHOCYTIC LEUKAEMIA
     Route: 065
     Dates: start: 2015
  4. PURINETHOL [Suspect]
     Active Substance: MERCAPTOPURINE
     Indication: ACUTE LYMPHOCYTIC LEUKAEMIA
     Route: 065
     Dates: start: 2015

REACTIONS (2)
  - Chromosomal mutation [Unknown]
  - Acute myeloid leukaemia [Recovered/Resolved]

NARRATIVE: CASE EVENT DATE: 2016
